FAERS Safety Report 9996780 (Version 1)
Quarter: 2014Q1

REPORT INFORMATION
  Report Type: Spontaneous
  Country: US (occurrence: US)
  Receive Date: 20140311
  Receipt Date: 20140311
  Transmission Date: 20141002
  Serious: No
  Sender: FDA-Public Use
  Company Number: US-GLAXOSMITHKLINE-A1025673A

PATIENT
  Sex: Female

DRUGS (1)
  1. NICORETTE OTC 4MG [Suspect]
     Indication: PRODUCT USED FOR UNKNOWN INDICATION
     Dates: start: 20120710

REACTIONS (3)
  - Anxiety [Unknown]
  - Sleep disorder [Unknown]
  - Feeling abnormal [Unknown]
